FAERS Safety Report 4371834-7 (Version None)
Quarter: 2004Q2

REPORT INFORMATION
  Report Type: 
  Country: None (occurrence: None)
  Receive Date: 20040602
  Receipt Date: 20040525
  Transmission Date: 20050107
  Serious: Yes (Hospitalization)
  Sender: FDA-Public Use
  Company Number: 2004215607US

PATIENT
  Age: 84 Year
  Sex: Female

DRUGS (6)
  1. CELEBREX [Suspect]
     Indication: RHEUMATOID ARTHRITIS
     Dosage: 200 MG, QD
  2. COUMADIN [Concomitant]
  3. GLUCOSAMINE W/CHONDROITIN SULFATES (MANGANESE) [Concomitant]
  4. GLYBURIDE [Concomitant]
  5. GLUCOVANCE [Concomitant]
  6. MANGANESE [Concomitant]

REACTIONS (1)
  - APHASIA [None]
